FAERS Safety Report 10997077 (Version 2)
Quarter: 2015Q2

REPORT INFORMATION
  Report Type: Spontaneous
  Country: US (occurrence: None)
  Receive Date: 20150331
  Receipt Date: 20150528
  Transmission Date: 20150821
  Serious: Yes (Hospitalization, Other)
  Sender: FDA-Public Use
  Company Number: PHEH2015US004021

PATIENT
  Sex: Female
  Weight: 56.4 kg

DRUGS (1)
  1. AFINITOR [Suspect]
     Active Substance: EVEROLIMUS
     Indication: BREAST CANCER METASTATIC
     Route: 048
     Dates: start: 20140811, end: 201502

REACTIONS (4)
  - Respiratory rate increased [None]
  - Pneumonitis [None]
  - Cough [None]
  - Dyspnoea [None]
